FAERS Safety Report 8388802-0 (Version None)
Quarter: 2012Q2

REPORT INFORMATION
  Report Type: 
  Country: None (occurrence: None)
  Receive Date: 20120528
  Receipt Date: 20120515
  Transmission Date: 20120825
  Serious: Yes (Death, Hospitalization, Other)
  Sender: FDA-Public Use
  Company Number: GB-RANBAXY-2012R1-53269

PATIENT
  Age: 49 Year
  Sex: Male

DRUGS (13)
  1. PROCYCLIDINE HYDROCHLORIDE 2MG TAB [Concomitant]
     Indication: EXTRAPYRAMIDAL DISORDER
     Dosage: UNK
     Route: 048
     Dates: start: 20120325
  2. CITALOPRAM HYDROBROMIDE [Concomitant]
     Indication: DEPRESSED MOOD
     Dosage: UNK
     Route: 048
     Dates: start: 20101008
  3. CLOZARIL [Suspect]
     Dosage: UNK
     Dates: start: 20101110, end: 20120119
  4. OLANZAPINE [Concomitant]
     Indication: SCHIZOPHRENIA
     Dosage: UNK
     Route: 048
     Dates: start: 20120127
  5. RISPERIDONE [Suspect]
     Indication: PRODUCT USED FOR UNKNOWN INDICATION
     Dosage: 1 MG, BID
     Route: 048
     Dates: start: 20100608, end: 20120127
  6. CLOZARIL [Suspect]
     Indication: SCHIZOPHRENIA
     Dosage: UNK
     Route: 048
     Dates: start: 20070220, end: 20120118
  7. CLOZARIL [Suspect]
     Dosage: UNK
     Route: 048
     Dates: start: 20101110, end: 20120118
  8. PIRENZEPINE [Suspect]
     Indication: SALIVARY HYPERSECRETION
     Dosage: 50 MG, TID
     Route: 048
     Dates: start: 20100608, end: 20120120
  9. CLOZARIL [Suspect]
     Dosage: UNK
     Route: 048
     Dates: start: 20070220
  10. SIMVASTATIN [Concomitant]
     Indication: BLOOD CHOLESTEROL INCREASED
     Dosage: UNK
     Route: 048
     Dates: start: 20100608
  11. OLANZAPINE [Suspect]
     Indication: PRODUCT USED FOR UNKNOWN INDICATION
     Dosage: UNK
     Route: 048
     Dates: start: 20120127
  12. VALPROIC ACID [Suspect]
     Indication: AFFECTIVE DISORDER
     Dosage: 250 MG, TID
     Route: 048
     Dates: start: 20100608
  13. CITALOPRAM HYDROBROMIDE [Concomitant]
     Dosage: UNK
     Dates: start: 20100608

REACTIONS (9)
  - HEPATITIS C VIRUS TEST POSITIVE [None]
  - SALIVARY HYPERSECRETION [None]
  - PLATELET COUNT DECREASED [None]
  - PSYCHOTIC DISORDER [None]
  - MENTAL IMPAIRMENT [None]
  - HEPATITIS [None]
  - NEUTROPENIA [None]
  - THROMBOCYTOPENIA [None]
  - EOSINOPHIL COUNT DECREASED [None]
